FAERS Safety Report 8170603-X (Version None)
Quarter: 2012Q1

REPORT INFORMATION
  Report Type: 
  Country: None (occurrence: None)
  Receive Date: 20120104
  Receipt Date: 20111011
  Transmission Date: 20120608
  Serious: No
  Sender: FDA-Public Use
  Company Number: 2011HGS-002628

PATIENT
  Age: 37 Year
  Sex: Female
  Weight: 52.1637 kg

DRUGS (7)
  1. BENLYSTA [Suspect]
     Indication: SYSTEMIC LUPUS ERYTHEMATOSUS
     Dosage: 10 MG/KG, 0,2,4 WEEKS THEN EVERY 4 WEEKS, INTRAVENOUS DRIP
     Route: 041
  2. TOPAMAX [Concomitant]
  3. CELEXA [Concomitant]
  4. TRAMADOL HCL [Concomitant]
  5. PLAQUENIL [Concomitant]
  6. VITAMIN D [Concomitant]
  7. ARAVA [Concomitant]

REACTIONS (2)
  - HEADACHE [None]
  - NAUSEA [None]
